FAERS Safety Report 8548109-5 (Version None)
Quarter: 2012Q3

REPORT INFORMATION
  Report Type: 
  Country: None (occurrence: None)
  Receive Date: 20120730
  Receipt Date: 20120723
  Transmission Date: 20120928
  Serious: No
  Sender: FDA-Public Use
  Company Number: US-009507513-1207USA009018

PATIENT

DRUGS (2)
  1. AZASITE [Suspect]
     Dosage: 2 DROPS, BID
  2. AZASITE [Suspect]
     Dosage: 2 DROPS, QD

REACTIONS (4)
  - DRUG DOSE OMISSION [None]
  - DRUG PRESCRIBING ERROR [None]
  - NO ADVERSE EVENT [None]
  - PRODUCT CONTAINER ISSUE [None]
